FAERS Safety Report 10135968 (Version 2)
Quarter: 2014Q2

REPORT INFORMATION
  Report Type: Spontaneous
  Country: US (occurrence: US)
  Receive Date: 20140429
  Receipt Date: 20140429
  Transmission Date: 20141212
  Serious: Yes (Hospitalization)
  Sender: FDA-Public Use
  Company Number: US-BEH-2013035676

PATIENT
  Age: 71 Year
  Sex: Male
  Weight: 73 kg

DRUGS (37)
  1. PRIVIGEN [Suspect]
     Route: 042
  2. PRIVIGEN [Suspect]
     Route: 042
  3. PRIVIGEN [Suspect]
     Route: 042
  4. PRIVIGEN [Suspect]
     Indication: IMMUNODEFICIENCY COMMON VARIABLE
     Route: 042
  5. PRIVIGEN [Suspect]
     Route: 042
  6. PRIVIGEN [Suspect]
     Dosage: OVER 2-8 HOURS
     Route: 042
  7. PRIVIGEN [Suspect]
     Dosage: OVER 2-8 HOURS
     Route: 042
  8. DIPHENHYDRAMINE [Concomitant]
     Indication: PREMEDICATION
  9. HEPARIN [Concomitant]
     Indication: PREMEDICATION
  10. SODIUM CHLORIDE [Concomitant]
     Indication: PREMEDICATION
  11. EPI-PEN [Concomitant]
     Indication: PREMEDICATION
  12. TAZTIA XT [Concomitant]
  13. COUMADIN [Concomitant]
  14. SINGULAIR [Concomitant]
  15. DETROL LA [Concomitant]
  16. ASTEPRO [Concomitant]
  17. LASIX [Concomitant]
  18. TRICOR [Concomitant]
  19. QUINIDINE SULF ER [Concomitant]
  20. PROMETHAZINE [Concomitant]
  21. FOLIC ACID [Concomitant]
  22. GABAPENTIN [Concomitant]
  23. SYMBICORT [Concomitant]
     Dosage: 160-4.5 MCG
  24. NEXIUM [Concomitant]
  25. SPIRONOLACTONE [Concomitant]
  26. ALLOPURINOL [Concomitant]
  27. FEXOFENADINE [Concomitant]
  28. HYDROXYZINE [Concomitant]
  29. DOCUSATE SODIUM [Concomitant]
  30. MAGNESIUM OXIDE [Concomitant]
  31. THEOPHYLLINE ER [Concomitant]
  32. DOCUSATE CAL [Concomitant]
  33. LOPERAMIDE [Concomitant]
  34. PROAIR [Concomitant]
  35. NASCOBAL [Concomitant]
  36. VITAMIN B-12 [Concomitant]
  37. VITAMIN D [Concomitant]

REACTIONS (6)
  - Investigation [Recovered/Resolved]
  - Hospitalisation [Unknown]
  - Faecal incontinence [Unknown]
  - Gastrointestinal infection [Unknown]
  - Poor venous access [Unknown]
  - Blood magnesium abnormal [Unknown]
